FAERS Safety Report 11194450 (Version 2)
Quarter: 2015Q3

REPORT INFORMATION
  Report Type: Report from Study
  Country: MX (occurrence: MX)
  Receive Date: 20150616
  Receipt Date: 20150706
  Transmission Date: 20151125
  Serious: Yes (Other)
  Sender: FDA-Public Use
  Company Number: PHHY2015MX070037

PATIENT
  Age: 68 Year
  Sex: Female
  Weight: 98 kg

DRUGS (6)
  1. COMBIVENT [Concomitant]
     Active Substance: ALBUTEROL SULFATE\IPRATROPIUM BROMIDE
     Indication: PRODUCT USED FOR UNKNOWN INDICATION
     Dosage: 3.01/ 0.52 MG, FREQUENCY: WHEN LACKS AIR
     Route: 055
  2. CALCIUM + VITAMIN D3 [Concomitant]
     Indication: OSTEOPENIA
     Dosage: 2 DF, QD (IN THE MORNING AND 1 IN THE NIGHT)
     Route: 048
  3. RISEDRONIC ACID [Concomitant]
     Active Substance: RISEDRONIC ACID
     Indication: BLOOD CALCIUM ABNORMAL
     Dosage: 35 MG, QW
     Route: 048
  4. LOSARTAN. [Concomitant]
     Active Substance: LOSARTAN
     Indication: HYPERTENSION
     Dosage: 50 MG, BID (IN THE MORNING AND IN THE NIGHT)
     Route: 048
  5. ONBREZ BREEZHALER [Suspect]
     Active Substance: INDACATEROL
     Indication: DYSPNOEA
     Dosage: 150 UG, QD (AT NOON)
     Route: 055
  6. SALBUTAMOL [Concomitant]
     Active Substance: ALBUTEROL
     Indication: PRODUCT USED FOR UNKNOWN INDICATION
     Dosage: FREQUENCY: IN EMERGENCY OCCASIONS
     Route: 055

REACTIONS (6)
  - Chronic obstructive pulmonary disease [Not Recovered/Not Resolved]
  - Sensation of foreign body [Recovered/Resolved]
  - Dyspnoea [Unknown]
  - Malaise [Recovered/Resolved]
  - Cough [Recovered/Resolved]
  - Nausea [Recovered/Resolved]

NARRATIVE: CASE EVENT DATE: 20150609
